FAERS Safety Report 11302698 (Version 1)
Quarter: 2015Q3

REPORT INFORMATION
  Report Type: Spontaneous
  Country: US (occurrence: None)
  Receive Date: 20150723
  Receipt Date: 20150723
  Transmission Date: 20151125
  Serious: No
  Sender: FDA-Public Use
  Company Number: None

PATIENT
  Age: 40 Year
  Sex: Female
  Weight: 58.06 kg

DRUGS (5)
  1. XIFAXAN [Suspect]
     Active Substance: RIFAXIMIN
     Indication: ABDOMINAL PAIN UPPER
     Route: 048
  2. NASONEX [Concomitant]
     Active Substance: MOMETASONE FUROATE
  3. XIFAXAN [Suspect]
     Active Substance: RIFAXIMIN
     Indication: IRRITABLE BOWEL SYNDROME
     Route: 048
  4. IBUPROFEN. [Concomitant]
     Active Substance: IBUPROFEN
  5. XIFAXAN [Suspect]
     Active Substance: RIFAXIMIN
     Indication: ABDOMINAL DISTENSION
     Route: 048

REACTIONS (2)
  - Palpitations [None]
  - Fatigue [None]

NARRATIVE: CASE EVENT DATE: 20150717
